FAERS Safety Report 25864587 (Version 1)
Quarter: 2025Q3

REPORT INFORMATION
  Report Type: Spontaneous
  Country: US (occurrence: US)
  Receive Date: 20250930
  Receipt Date: 20250930
  Transmission Date: 20251021
  Serious: Yes (Other)
  Sender: PFIZER
  Company Number: US-PFIZER INC-202500190173

PATIENT
  Age: 70 Year
  Sex: Male
  Weight: 74.286 kg

DRUGS (1)
  1. OXALIPLATIN [Suspect]
     Active Substance: OXALIPLATIN

REACTIONS (6)
  - Portal hypertension [Unknown]
  - Ascites [Unknown]
  - Pseudocirrhosis [Unknown]
  - Haemorrhage [Recovered/Resolved]
  - Gastritis [Unknown]
  - Argon plasma coagulation [Unknown]

NARRATIVE: CASE EVENT DATE: 20240709
